FAERS Safety Report 7831531-X (Version None)
Quarter: 2011Q4

REPORT INFORMATION
  Report Type: 
  Country: None (occurrence: None)
  Receive Date: 20111021
  Receipt Date: 20111012
  Transmission Date: 20120403
  Serious: Yes (Other)
  Sender: FDA-Public Use
  Company Number: PHHO2010US10684

PATIENT
  Age: 61 Year
  Sex: Male
  Weight: 91.2 kg

DRUGS (13)
  1. MYFORTIC [Suspect]
     Indication: IMMUNOSUPPRESSION
     Dosage: 360 MG, BID
     Route: 048
     Dates: start: 20090916, end: 20100610
  2. MYFORTIC [Suspect]
     Dosage: 180 MG, QD
     Dates: start: 20101224
  3. PREDNISONE [Suspect]
     Dosage: 5 MG, QD
     Route: 048
     Dates: start: 20090104
  4. OMEGA-3 TRIGLYCERIDES [Concomitant]
  5. SIMVASTATIN [Concomitant]
  6. MYCOPHENOLATE MOFETIL (CELLCEPT) [Concomitant]
     Indication: RENAL TRANSPLANT
     Dosage: UNK
     Dates: start: 20081209, end: 20090915
  7. ASPIRIN [Concomitant]
     Indication: CARDIOVASCULAR EVENT PROPHYLAXIS
     Dosage: UNK
     Dates: start: 20060912, end: 20100101
  8. CALCIUM CARBONATE [Concomitant]
  9. BACTRIM [Concomitant]
  10. NORVASC [Concomitant]
  11. MYFORTIC [Suspect]
     Dosage: 360 MG, QD
     Route: 048
     Dates: start: 20101007, end: 20101223
  12. MULTI-VITAMINS [Concomitant]
  13. VITAMIN D [Concomitant]

REACTIONS (2)
  - SQUAMOUS CELL CARCINOMA [None]
  - TUMOUR INVASION [None]
